FAERS Safety Report 7319346-2 (Version None)
Quarter: 2011Q1

REPORT INFORMATION
  Report Type: 
  Country: None (occurrence: None)
  Receive Date: 20110228
  Receipt Date: 20100202
  Transmission Date: 20110831
  Serious: Yes (Other)
  Sender: FDA-Public Use
  Company Number: A0843578A

PATIENT
  Age: 30 Year
  Sex: Male

DRUGS (3)
  1. LAMICTAL [Suspect]
     Dosage: 600MG PER DAY
     Route: 048
     Dates: start: 20010101
  2. TOPAMAX [Suspect]
     Dosage: 150MG PER DAY
     Route: 048
     Dates: start: 20050101
  3. KEPPRA [Suspect]
     Dosage: 3000MG PER DAY
     Route: 048
     Dates: start: 20020101

REACTIONS (2)
  - DEPRESSED MOOD [None]
  - SUICIDAL IDEATION [None]
